FAERS Safety Report 13313466 (Version 3)
Quarter: 2017Q2

REPORT INFORMATION
  Report Type: Report from Study
  Country: IE (occurrence: IE)
  Receive Date: 20170309
  Receipt Date: 20170414
  Transmission Date: 20170830
  Serious: Yes (Hospitalization, Other)
  Sender: FDA-Public Use
  Company Number: US-ASTRAZENECA-2017SE24653

PATIENT
  Age: 116 Day
  Sex: Female

DRUGS (1)
  1. SYNAGIS [Suspect]
     Active Substance: PALIVIZUMAB
     Indication: PREMATURE BABY
     Route: 030
     Dates: start: 20170201

REACTIONS (4)
  - Bronchiolitis [Recovering/Resolving]
  - Aspiration [Recovering/Resolving]
  - Respiratory distress [Unknown]
  - Bronchopulmonary dysplasia [Recovering/Resolving]

NARRATIVE: CASE EVENT DATE: 20170222
